FAERS Safety Report 24302354 (Version 1)
Quarter: 2024Q3

REPORT INFORMATION
  Report Type: Spontaneous
  Country: IT (occurrence: IT)
  Receive Date: 20240910
  Receipt Date: 20240910
  Transmission Date: 20241016
  Serious: Yes (Other)
  Sender: ACCORD
  Company Number: None

PATIENT
  Age: 75 Year
  Sex: Female

DRUGS (16)
  1. TRAZODONE HYDROCHLORIDE [Suspect]
     Active Substance: TRAZODONE HYDROCHLORIDE
     Indication: Medication error
     Dates: start: 20240808, end: 20240809
  2. PREGABALIN [Suspect]
     Active Substance: PREGABALIN
     Indication: Medication error
     Dates: start: 20240808, end: 20240809
  3. CLONAZEPAM [Suspect]
     Active Substance: CLONAZEPAM
     Indication: Medication error
     Dates: start: 20240808, end: 20240809
  4. LANTUS [Concomitant]
     Active Substance: INSULIN GLARGINE
  5. MORPHINE HYDROCHLORIDE [Concomitant]
     Active Substance: MORPHINE HYDROCHLORIDE
     Dates: start: 20240808, end: 20240808
  6. APIDRA [Concomitant]
     Active Substance: INSULIN GLULISINE
  7. TAPENTADOL [Concomitant]
     Active Substance: TAPENTADOL
  8. DABIGATRAN [Concomitant]
     Active Substance: DABIGATRAN
  9. ATORVASTATIN [Concomitant]
     Active Substance: ATORVASTATIN
  10. VENLAFAXINE [Concomitant]
     Active Substance: VENLAFAXINE HYDROCHLORIDE
  11. FUROSEMIDE [Concomitant]
     Active Substance: FUROSEMIDE
  12. AMLODIPINE [Concomitant]
     Active Substance: AMLODIPINE BESYLATE
  13. BISOPROLOL [Concomitant]
     Active Substance: BISOPROLOL\BISOPROLOL FUMARATE
  14. FEBUXOSTAT [Concomitant]
     Active Substance: FEBUXOSTAT
  15. ENTECAVIR [Concomitant]
     Active Substance: ENTECAVIR
  16. PANTOPRAZOLE [Concomitant]
     Active Substance: PANTOPRAZOLE

REACTIONS (2)
  - Medication error [Recovered/Resolved]
  - Coma [Recovered/Resolved]

NARRATIVE: CASE EVENT DATE: 20240809
